FAERS Safety Report 15722577 (Version 1)
Quarter: 2018Q4

REPORT INFORMATION
  Report Type: Spontaneous
  Country: US (occurrence: US)
  Receive Date: 20181213
  Receipt Date: 20181213
  Transmission Date: 20190205
  Serious: Yes (Disabling)
  Sender: FDA-Public Use
  Company Number: None

PATIENT
  Age: 36 Year
  Sex: Female
  Weight: 63 kg

DRUGS (1)
  1. MEFLOQUINE [Suspect]
     Active Substance: MEFLOQUINE
     Indication: MALARIA PROPHYLAXIS
     Dosage: ?          QUANTITY:1 TABLET(S);OTHER FREQUENCY:1 TIME PER WEEK;?
     Route: 048
     Dates: start: 20100707, end: 20121115

REACTIONS (4)
  - Lethargy [None]
  - Paranoia [None]
  - Amnesia [None]
  - Hallucination, visual [None]

NARRATIVE: CASE EVENT DATE: 20120812
